FAERS Safety Report 5958384-9 (Version None)
Quarter: 2008Q4

REPORT INFORMATION
  Report Type: 
  Country: None (occurrence: None)
  Receive Date: 20081119
  Receipt Date: 20081106
  Transmission Date: 20090506
  Serious: Yes (Other)
  Sender: FDA-Public Use
  Company Number: CH-ASTRAZENECA-2008PK02447

PATIENT
  Age: 76 Year
  Sex: Female
  Weight: 78 kg

DRUGS (11)
  1. NEXIUM [Suspect]
     Indication: GASTRITIS
     Route: 048
     Dates: start: 20080101
  2. ZOLOFT [Interacting]
     Indication: ANXIETY
     Route: 048
     Dates: start: 20080404, end: 20080903
  3. ZOLOFT [Interacting]
     Indication: DEPRESSION
     Route: 048
     Dates: start: 20080404, end: 20080903
  4. ZOLOFT [Interacting]
     Route: 048
     Dates: start: 20080904, end: 20080910
  5. ZOLOFT [Interacting]
     Route: 048
     Dates: start: 20080904, end: 20080910
  6. ZOLOFT [Interacting]
     Route: 048
     Dates: start: 20080910, end: 20080915
  7. ZOLOFT [Interacting]
     Route: 048
     Dates: start: 20080910, end: 20080915
  8. FOLVITE [Concomitant]
     Route: 048
     Dates: start: 20051101
  9. TORSEMIDE [Concomitant]
     Route: 048
     Dates: start: 20080401
  10. SERESTA [Concomitant]
     Route: 048
     Dates: start: 20051101
  11. GLUCOPHAGE [Concomitant]
     Route: 048
     Dates: start: 20071201

REACTIONS (3)
  - DRUG INTERACTION [None]
  - DRUG TOXICITY [None]
  - LONG QT SYNDROME [None]
